FAERS Safety Report 5537494-4 (Version None)
Quarter: 2007Q4

REPORT INFORMATION
  Report Type: 
  Country: None (occurrence: None)
  Receive Date: 20071207
  Receipt Date: 20071130
  Transmission Date: 20080405
  Serious: Yes (Hospitalization)
  Sender: FDA-Public Use
  Company Number: US-ELI_LILLY_AND_COMPANY-US200711006976

PATIENT
  Sex: Male

DRUGS (1)
  1. HUMALOG [Suspect]
     Dosage: SLIDING SCALE
     Dates: start: 20070101

REACTIONS (3)
  - DIABETIC RETINOPATHY [None]
  - HYPERGLYCAEMIA [None]
  - PHYSICAL ASSAULT [None]
